FAERS Safety Report 15689246 (Version 1)
Quarter: 2018Q4

REPORT INFORMATION
  Report Type: Spontaneous
  Country: CA (occurrence: CA)
  Receive Date: 20181205
  Receipt Date: 20181205
  Transmission Date: 20190205
  Serious: Yes (Death)
  Sender: FDA-Public Use
  Company Number: CA-TEVA-2018-CA-981861

PATIENT
  Age: 58 Year
  Sex: Male
  Weight: 82 kg

DRUGS (8)
  1. QUETIAPINE. [Concomitant]
     Active Substance: QUETIAPINE
  2. DIPHENHYDRAMINE. [Concomitant]
     Active Substance: DIPHENHYDRAMINE
  3. RABEPRAZOLE [Concomitant]
     Active Substance: RABEPRAZOLE
  4. MORPHINE [Suspect]
     Active Substance: MORPHINE
     Route: 065
  5. DIAZEPAM. [Concomitant]
     Active Substance: DIAZEPAM
  6. HYDROMORPHONE [Concomitant]
     Active Substance: HYDROMORPHONE
  7. OXAZEPAM. [Concomitant]
     Active Substance: OXAZEPAM
  8. ZOPICLONE [Concomitant]
     Active Substance: ZOPICLONE

REACTIONS (1)
  - Accidental death [Fatal]
